FAERS Safety Report 8435005-7 (Version None)
Quarter: 2012Q2

REPORT INFORMATION
  Report Type: 
  Country: None (occurrence: None)
  Receive Date: 20120614
  Receipt Date: 20120608
  Transmission Date: 20120825
  Serious: No
  Sender: FDA-Public Use
  Company Number: US-PFIZER INC-2012140138

PATIENT
  Sex: Female
  Weight: 58.1 kg

DRUGS (2)
  1. SUTENT [Suspect]
     Indication: RENAL CANCER
     Dosage: 37.5 MG, DAILY 28 DAYS ON, 14 DAYS OFF
     Dates: start: 20111101, end: 20120101
  2. SYNTHROID [Concomitant]
     Indication: THYROID DISORDER
     Dosage: 0.075 MG, DAILY

REACTIONS (3)
  - FATIGUE [None]
  - RENAL CANCER [None]
  - DISEASE PROGRESSION [None]
